FAERS Safety Report 16275690 (Version 1)
Quarter: 2019Q2

REPORT INFORMATION
  Report Type: Spontaneous
  Country: CZ (occurrence: CZ)
  Receive Date: 20190506
  Receipt Date: 20190506
  Transmission Date: 20190711
  Serious: Yes (Life-Threatening, Hospitalization, Other)
  Sender: FDA-Public Use
  Company Number: CZ-GLAXOSMITHKLINE-CZ2019079454

PATIENT
  Age: 48 Year
  Sex: Female
  Weight: 81 kg

DRUGS (2)
  1. ZENARO [Concomitant]
     Active Substance: LEVOCETIRIZINE
     Indication: PRODUCT USED FOR UNKNOWN INDICATION
     Dosage: 5 MG, UNK
     Route: 048
     Dates: start: 20190329, end: 20190404
  2. ZINNAT [Suspect]
     Active Substance: CEFUROXIME
     Indication: PRODUCT USED FOR UNKNOWN INDICATION
     Dosage: 1 TBL EVERY 12 HOURS
     Route: 048
     Dates: start: 20190330, end: 20190404

REACTIONS (10)
  - Flushing [Unknown]
  - Vomiting [Unknown]
  - Feeling hot [Unknown]
  - Fall [Unknown]
  - Abdominal pain [Unknown]
  - Gastrointestinal motility disorder [Unknown]
  - Headache [Recovering/Resolving]
  - Diarrhoea [Recovered/Resolved]
  - Blindness transient [Unknown]
  - Anorectal swelling [Unknown]

NARRATIVE: CASE EVENT DATE: 20190330
